FAERS Safety Report 8828810 (Version 4)
Quarter: 2013Q1

REPORT INFORMATION
  Report Type: Spontaneous
  Country: US (occurrence: US)
  Receive Date: 20121008
  Receipt Date: 20130315
  Transmission Date: 20140127
  Serious: Yes (Other)
  Sender: FDA-Public Use
  Company Number: US-PFIZER INC-2012247985

PATIENT
  Age: 43 Year
  Sex: Female
  Weight: 75 kg

DRUGS (1)
  1. LYRICA [Suspect]
     Indication: FIBROMYALGIA
     Dosage: 300 MG, 2X/DAY
     Route: 048

REACTIONS (4)
  - Bronchitis [Recovering/Resolving]
  - Pain [Unknown]
  - Pain in extremity [Unknown]
  - Withdrawal syndrome [Unknown]
